FAERS Safety Report 22290284 (Version 2)
Quarter: 2023Q2

REPORT INFORMATION
  Report Type: Spontaneous
  Country: US (occurrence: US)
  Receive Date: 20230505
  Receipt Date: 20230531
  Transmission Date: 20230721
  Serious: Yes (Other)
  Sender: FDA-Public Use
  Company Number: US-PFIZER INC-PV202300079409

PATIENT
  Age: 76 Year
  Sex: Female
  Weight: 78.1 kg

DRUGS (1)
  1. IBRANCE [Suspect]
     Active Substance: PALBOCICLIB
     Indication: Breast cancer
     Dosage: 100 MG, CYCLIC (1-21 OF 28 DAY CYCLE)
     Route: 048
     Dates: start: 20230406, end: 20230426

REACTIONS (3)
  - Neutropenia [Recovering/Resolving]
  - Full blood count abnormal [Unknown]
  - Fatigue [Recovering/Resolving]

NARRATIVE: CASE EVENT DATE: 20230427
